FAERS Safety Report 20740783 (Version 3)
Quarter: 2024Q1

REPORT INFORMATION
  Report Type: Spontaneous
  Country: FR (occurrence: FR)
  Receive Date: 20220422
  Receipt Date: 20240205
  Transmission Date: 20240410
  Serious: Yes (Death, Other)
  Sender: FDA-Public Use
  Company Number: FR-ANIPHARMA-2022-FR-000061

PATIENT
  Age: 65 Year
  Sex: Male
  Weight: 71 kg

DRUGS (10)
  1. CANDESARTAN CILEXETIL AND HYDROCHLOROTHIAZIDE [Suspect]
     Active Substance: CANDESARTAN CILEXETIL\HYDROCHLOROTHIAZIDE
     Indication: Hypertension
     Dosage: 8 MG DAILY
     Route: 048
  2. KARDEGIC [Suspect]
     Active Substance: ASPIRIN DL-LYSINE
     Dosage: 1 DF DAILY
     Route: 048
  3. ESOMEPRAZOLE [Suspect]
     Active Substance: ESOMEPRAZOLE
     Dosage: 20 MG DAILY
     Route: 048
  4. METOPROLOL TARTRATE [Suspect]
     Active Substance: METOPROLOL TARTRATE
     Dosage: 100 MG DAILY
     Route: 048
  5. CALCIUM CHLORIDE [Suspect]
     Active Substance: CALCIUM CHLORIDE
     Dosage: 500 MG DAILY
     Route: 048
     Dates: start: 201701
  6. NULOJIX [Suspect]
     Active Substance: BELATACEPT
     Dosage: 360 MG MONTH
     Route: 042
     Dates: start: 201701
  7. PREDNISONE [Suspect]
     Active Substance: PREDNISONE
     Dosage: 10 MG DAILY
     Route: 048
  8. URAPIDIL [Suspect]
     Active Substance: URAPIDIL
     Dosage: 180 MG DAILY
     Route: 048
  9. SOTROVIMAB [Suspect]
     Active Substance: SOTROVIMAB
     Dosage: 500 MG DAILY
     Route: 042
     Dates: start: 20220404, end: 20220404
  10. LERCANIDIPINE [Suspect]
     Active Substance: LERCANIDIPINE
     Dosage: 20 MG DAILY
     Route: 048

REACTIONS (1)
  - Sudden death [Fatal]

NARRATIVE: CASE EVENT DATE: 20220407
